FAERS Safety Report 8788507 (Version 2)
Quarter: 2012Q4

REPORT INFORMATION
  Report Type: 
  Country: US (occurrence: US)
  Receive Date: 20120914
  Receipt Date: 20121015
  Transmission Date: 20130627
  Serious: Yes (Other)
  Sender: FDA-Public Use
  Company Number: US-VERTEX PHARMACEUTICAL INC.-AE-2012-010666

PATIENT
  Sex: Female
  Weight: 77 kg

DRUGS (6)
  1. VX-950 [Suspect]
     Indication: HEPATITIS C
     Dosage: 750 mg, tid
     Route: 048
     Dates: start: 2012, end: 2012
  2. PEGASYS [Concomitant]
     Indication: HEPATITIS C
     Dosage: 180 UNK, UNK
     Route: 058
     Dates: start: 2012
  3. RIBASPHERE [Concomitant]
     Indication: HEPATITIS C
     Dosage: 600 mg, bid
     Route: 048
     Dates: start: 2012
  4. RIBASPHERE [Concomitant]
     Dosage: 400 mg, UNK
     Route: 048
     Dates: start: 2012
  5. ZYRTEC [Concomitant]
     Dosage: 10 mg, qd
     Route: 048
  6. PROZAC [Concomitant]
     Dosage: 20 mg, qd
     Route: 048

REACTIONS (5)
  - Anaemia [Unknown]
  - Heart rate increased [Unknown]
  - Hypotension [Unknown]
  - Asthenia [Not Recovered/Not Resolved]
  - Fatigue [Unknown]
